FAERS Safety Report 17267924 (Version 1)
Quarter: 2020Q1

REPORT INFORMATION
  Report Type: Spontaneous
  Country: US (occurrence: US)
  Receive Date: 20200114
  Receipt Date: 20200114
  Transmission Date: 20200409
  Serious: Yes (Life-Threatening)
  Sender: FDA-Public Use
  Company Number: None

PATIENT
  Age: 32 Year
  Sex: Female

DRUGS (2)
  1. LACTATED RINGERS SOLUTION [Concomitant]
     Active Substance: CALCIUM CHLORIDE\POTASSIUM CHLORIDE\SODIUM CHLORIDE\SODIUM LACTATE
     Dates: start: 20191111, end: 20191111
  2. OXYTOCIN. [Suspect]
     Active Substance: OXYTOCIN
     Indication: PREGNANCY

REACTIONS (4)
  - Overdose [None]
  - Device programming error [None]
  - Caesarean section [None]
  - Exposure during pregnancy [None]

NARRATIVE: CASE EVENT DATE: 20191111
